FAERS Safety Report 25573593 (Version 7)
Quarter: 2025Q3

REPORT INFORMATION
  Report Type: Spontaneous
  Country: JP (occurrence: JP)
  Receive Date: 20250717
  Receipt Date: 20250912
  Transmission Date: 20251021
  Serious: Yes (Death, Hospitalization)
  Sender: JAZZ
  Company Number: JP-JAZZ PHARMACEUTICALS-2025-JP-017603

PATIENT
  Age: 46 Year
  Sex: Female

DRUGS (2)
  1. DEFITELIO [Suspect]
     Active Substance: DEFIBROTIDE SODIUM
     Indication: Venoocclusive liver disease
     Dates: start: 20250627, end: 20250708
  2. DEFITELIO [Suspect]
     Active Substance: DEFIBROTIDE SODIUM
     Dates: start: 20250714, end: 20250726

REACTIONS (6)
  - Systemic candida [Fatal]
  - Lung disorder [Not Recovered/Not Resolved]
  - Pulmonary haemorrhage [Not Recovered/Not Resolved]
  - Haematuria [Recovering/Resolving]
  - Thrombotic microangiopathy [Unknown]
  - Blood bilirubin increased [Recovering/Resolving]

NARRATIVE: CASE EVENT DATE: 20250701
